FAERS Safety Report 7207762-9 (Version None)
Quarter: 2011Q1

REPORT INFORMATION
  Report Type: 
  Country: None (occurrence: None)
  Receive Date: 20110103
  Receipt Date: 20101220
  Transmission Date: 20110831
  Serious: Yes (Hospitalization)
  Sender: FDA-Public Use
  Company Number: PL-MYLANLABS-2010S1023458

PATIENT
  Age: 26 Year
  Sex: Male

DRUGS (6)
  1. DOXYCYCLINE [Suspect]
     Indication: UPPER RESPIRATORY TRACT INFECTION
     Route: 065
  2. FUSAFUNGINE [Suspect]
     Indication: UPPER RESPIRATORY TRACT INFECTION
  3. CEFACLOR [Suspect]
     Indication: UPPER RESPIRATORY TRACT INFECTION
     Route: 065
  4. SULFASALAZINE [Suspect]
     Indication: COLITIS ULCERATIVE
     Route: 065
  5. GENTAMICIN [Suspect]
     Indication: UPPER RESPIRATORY TRACT INFECTION
     Route: 030
  6. CEFOTAXIME SODIUM [Suspect]
     Indication: UPPER RESPIRATORY TRACT INFECTION
     Route: 065

REACTIONS (1)
  - TOXIC EPIDERMAL NECROLYSIS [None]
